FAERS Safety Report 17055937 (Version 1)
Quarter: 2019Q4

REPORT INFORMATION
  Report Type: Report from Study
  Country: US (occurrence: US)
  Receive Date: 20191120
  Receipt Date: 20191120
  Transmission Date: 20200122
  Serious: Yes (Hospitalization, Other)
  Sender: FDA-Public Use
  Company Number: US-BRISTOL-MYERS SQUIBB COMPANY-BMS-2019-108653

PATIENT
  Age: 86 Year
  Sex: Female

DRUGS (9)
  1. IPILIMUMAB [Suspect]
     Active Substance: IPILIMUMAB
     Indication: MALIGNANT MELANOMA
     Dosage: 201 MILLIGRAM
     Route: 042
     Dates: start: 20190814, end: 20190814
  2. PEMBROLIZUMAB. [Suspect]
     Active Substance: PEMBROLIZUMAB
     Indication: MALIGNANT MELANOMA
     Dosage: UNK
     Route: 065
  3. LANTUS [Interacting]
     Active Substance: INSULIN GLARGINE
     Indication: PRODUCT USED FOR UNKNOWN INDICATION
     Dosage: 1 DOSAGE FORM, QD (18 UNITS NIGHTLY (BEDTIME))
     Route: 058
     Dates: start: 20190416
  4. LEVOTHYROXINE. [Interacting]
     Active Substance: LEVOTHYROXINE
     Indication: PRODUCT USED FOR UNKNOWN INDICATION
     Dosage: 100 MICROGRAM, QD
     Route: 048
  5. NOVOLOG [Interacting]
     Active Substance: INSULIN ASPART
     Indication: PRODUCT USED FOR UNKNOWN INDICATION
     Dosage: 3 DOSAGE FORM, QD (5 UNITS)
     Route: 058
     Dates: start: 20190416
  6. LATANOPROST. [Interacting]
     Active Substance: LATANOPROST
     Indication: PRODUCT USED FOR UNKNOWN INDICATION
     Dosage: 1 DOSAGE FORM, QD 1 DROP IN BOTH EYES NIGHTLY (BEDTIME)
     Route: 047
  7. SODIUM CHLORIDE. [Interacting]
     Active Substance: SODIUM CHLORIDE
     Indication: PRODUCT USED FOR UNKNOWN INDICATION
     Dosage: 1 GRAM, QD
     Route: 048
  8. MYCELEX TROCHE [Concomitant]
     Indication: PRODUCT USED FOR UNKNOWN INDICATION
     Dosage: 10 MILLIGRAM, TID
     Route: 048
  9. LEVOTHYROXINE. [Interacting]
     Active Substance: LEVOTHYROXINE
     Indication: PRODUCT USED FOR UNKNOWN INDICATION
     Dosage: 75 MICROGRAM, QD
     Route: 048

REACTIONS (3)
  - Failure to thrive [Not Recovered/Not Resolved]
  - Colitis [Unknown]
  - Adrenal insufficiency [Not Recovered/Not Resolved]

NARRATIVE: CASE EVENT DATE: 20190814
